FAERS Safety Report 4938599-9 (Version None)
Quarter: 2006Q1

REPORT INFORMATION
  Report Type: 
  Country: None (occurrence: None)
  Receive Date: 20060306
  Receipt Date: 20060220
  Transmission Date: 20060701
  Serious: Yes (Hospitalization, Other)
  Sender: FDA-Public Use
  Company Number: 2006028026

PATIENT
  Age: 58 Year
  Sex: Male

DRUGS (1)
  1. CAVERJECT [Suspect]
     Indication: ILL-DEFINED DISORDER
     Dosage: (20 MCG, AS NECESSARY), PARENTERAL
     Route: 051

REACTIONS (1)
  - DEVICE FAILURE [None]
